FAERS Safety Report 18258276 (Version 1)
Quarter: 2020Q3

REPORT INFORMATION
  Report Type: Spontaneous
  Country: US (occurrence: US)
  Receive Date: 20200911
  Receipt Date: 20200911
  Transmission Date: 20201103
  Serious: Yes (Other)
  Sender: FDA-Public Use
  Company Number: NVSC2020US248219

PATIENT
  Age: 82 Year
  Sex: Male

DRUGS (4)
  1. BICALUTAMIDE. [Suspect]
     Active Substance: BICALUTAMIDE
     Dosage: 150 MG, QD
     Route: 048
  2. BICALUTAMIDE. [Suspect]
     Active Substance: BICALUTAMIDE
     Indication: MALIGNANT NEOPLASM OF LACRIMAL DUCT
     Dosage: 50 MG, QD
     Route: 048
  3. DEGARELIX [Concomitant]
     Active Substance: DEGARELIX
     Dosage: 80 MG, QMO
     Route: 065
  4. DEGARELIX [Concomitant]
     Active Substance: DEGARELIX
     Indication: MALIGNANT NEOPLASM OF LACRIMAL DUCT
     Dosage: 250 MG (LOADING DOSE)
     Route: 065

REACTIONS (5)
  - Erectile dysfunction [Recovering/Resolving]
  - Sexual dysfunction [Recovering/Resolving]
  - Loss of libido [Recovering/Resolving]
  - Product use in unapproved indication [Unknown]
  - Hot flush [Unknown]
